FAERS Safety Report 6057467-5 (Version None)
Quarter: 2009Q1

REPORT INFORMATION
  Report Type: 
  Country: None (occurrence: None)
  Receive Date: 20090126
  Receipt Date: 20090126
  Transmission Date: 20090719
  Serious: No
  Sender: FDA-Public Use
  Company Number: None

PATIENT
  Sex: Female
  Weight: 56.6996 kg

DRUGS (1)
  1. LEVAQUIN [Suspect]
     Indication: HEPATIC NEOPLASM MALIGNANT
     Dosage: 500MG 1PER DAYX5DAYS PO
     Route: 048
     Dates: start: 20080616, end: 20080620

REACTIONS (1)
  - TENDON RUPTURE [None]
